FAERS Safety Report 17261965 (Version 2)
Quarter: 2020Q1

REPORT INFORMATION
  Report Type: Spontaneous
  Country: US (occurrence: US)
  Receive Date: 20200113
  Receipt Date: 20200331
  Transmission Date: 20200409
  Serious: Yes (Hospitalization, Other)
  Sender: FDA-Public Use
  Company Number: US-PFIZER INC-2020012020

PATIENT
  Age: 69 Year
  Sex: Female
  Weight: 62.6 kg

DRUGS (3)
  1. DEPO-MEDROL [Suspect]
     Active Substance: METHYLPREDNISOLONE ACETATE
     Indication: ARTHRITIS
     Dosage: 1CC DEPO-MEDROL WITH 7CC LIDOCAINE INJECTION; ONE IN EACH SHOULDER
     Dates: start: 201811
  2. DEPO-MEDROL [Suspect]
     Active Substance: METHYLPREDNISOLONE ACETATE
     Indication: ARTHRALGIA
  3. LIDOCAINE HCL [Suspect]
     Active Substance: LIDOCAINE HYDROCHLORIDE
     Dosage: 1CC DEPO-MEDROL WITH 7CC LIDOCAINE INJECTION; ONE IN EACH SHOULDER
     Dates: start: 201811

REACTIONS (6)
  - Dyspnoea [Recovered/Resolved]
  - Dizziness [Recovered/Resolved]
  - Blood glucose increased [Recovering/Resolving]
  - Drug hypersensitivity [Recovered/Resolved]
  - Loss of consciousness [Unknown]
  - Flushing [Recovered/Resolved]

NARRATIVE: CASE EVENT DATE: 20200103
